FAERS Safety Report 19928776 (Version 2)
Quarter: 2021Q4

REPORT INFORMATION
  Report Type: Report from Study
  Country: US (occurrence: US)
  Receive Date: 20211007
  Receipt Date: 20211025
  Transmission Date: 20220303
  Serious: Yes (Other)
  Sender: FDA-Public Use
  Company Number: ALC2021US004618

PATIENT
  Sex: Female

DRUGS (4)
  1. AZOPT [Suspect]
     Active Substance: BRINZOLAMIDE
     Indication: Product used for unknown indication
     Dosage: UNK
     Route: 065
  2. SIMBRINZA [Suspect]
     Active Substance: BRIMONIDINE TARTRATE\BRINZOLAMIDE
     Indication: Glaucoma
     Dosage: UNK
     Route: 065
  3. TRAVATAN Z [Suspect]
     Active Substance: TRAVOPROST
     Indication: Product used for unknown indication
     Dosage: UNK
     Route: 065
  4. ENTRESTO [Suspect]
     Active Substance: SACUBITRIL\VALSARTAN
     Indication: Product used for unknown indication
     Dosage: UNK
     Route: 065

REACTIONS (3)
  - Cataract [Unknown]
  - Glaucoma [Unknown]
  - Blindness [Unknown]
